FAERS Safety Report 5065891-2 (Version None)
Quarter: 2006Q3

REPORT INFORMATION
  Report Type: 
  Country: None (occurrence: None)
  Receive Date: 20060728
  Receipt Date: 20060728
  Transmission Date: 20061208
  Serious: Yes (Other)
  Sender: FDA-Public Use
  Company Number: None

PATIENT
  Age: 53 Year
  Sex: Female
  Weight: 83 kg

DRUGS (8)
  1. DURAGESIC-50 [Suspect]
     Indication: PAIN
     Dosage: 50 MCG Q 72 HOURS PATCH
     Dates: start: 20060712, end: 20060714
  2. SENOKOT [Concomitant]
  3. COLACE [Concomitant]
  4. MOXIFLOXACIN HCL [Concomitant]
  5. NEURONTIN [Concomitant]
  6. ZESTRIL [Concomitant]
  7. NEXIUM [Concomitant]
  8. COUMADIN [Concomitant]

REACTIONS (2)
  - HYPOTENSION [None]
  - NAUSEA [None]
